FAERS Safety Report 26129208 (Version 2)
Quarter: 2025Q4

REPORT INFORMATION
  Report Type: Spontaneous
  Country: US (occurrence: US)
  Receive Date: 20251208
  Receipt Date: 20251218
  Transmission Date: 20260117
  Serious: Yes (Life-Threatening, Hospitalization, Other)
  Sender: AUROBINDO
  Company Number: US-MLMSERVICE-20251119-PI718396-00108-1

PATIENT
  Age: 72 Year
  Sex: Male

DRUGS (1)
  1. CLOZAPINE [Suspect]
     Active Substance: CLOZAPINE
     Indication: Schizophrenia
     Dosage: UNK (DOSE WAS REDUCED TO HALF)
     Route: 065

REACTIONS (8)
  - Sepsis [Unknown]
  - Small intestinal obstruction [Unknown]
  - Ileus [Unknown]
  - Acute abdomen [Unknown]
  - Small intestinal perforation [Unknown]
  - Intestinal haemorrhage [Unknown]
  - Gastrointestinal necrosis [Unknown]
  - Norovirus infection [Unknown]
